FAERS Safety Report 5488611-6 (Version None)
Quarter: 2007Q4

REPORT INFORMATION
  Report Type: 
  Country: None (occurrence: None)
  Receive Date: 20071001
  Receipt Date: 20061110
  Transmission Date: 20080405
  Serious: Yes (Hospitalization)
  Sender: FDA-Public Use
  Company Number: 200616116BWH

PATIENT
  Age: 37 Year
  Sex: Male

DRUGS (4)
  1. CIPRO [Suspect]
     Indication: DIARRHOEA
     Dosage: 500 MG, TOTAL DAILY, ORAL
     Route: 048
     Dates: start: 20060920
  2. CIPRO [Suspect]
     Indication: FOOD POISONING
     Dosage: 500 MG, TOTAL DAILY, ORAL
     Route: 048
     Dates: start: 20060920
  3. ALLERGY SHOTS [Concomitant]
  4. LIPITOR [Concomitant]

REACTIONS (7)
  - CHEST DISCOMFORT [None]
  - EYE SWELLING [None]
  - FLUSHING [None]
  - HYPERHIDROSIS [None]
  - HYPERSENSITIVITY [None]
  - THROAT TIGHTNESS [None]
  - VISION BLURRED [None]
